FAERS Safety Report 21073674 (Version 1)
Quarter: 2022Q3

REPORT INFORMATION
  Report Type: Spontaneous
  Country: CN (occurrence: None)
  Receive Date: 20220713
  Receipt Date: 20220713
  Transmission Date: 20221027
  Serious: Yes (Other)
  Sender: FDA-Public Use
  Company Number: CN-ROCHE-3131497

PATIENT
  Age: 71 Year
  Sex: Male

DRUGS (2)
  1. HERCEPTIN [Suspect]
     Active Substance: TRASTUZUMAB
     Indication: Cardiac neoplasm malignant
     Route: 041
     Dates: start: 20220624, end: 20220624
  2. PACLITAXEL [Suspect]
     Active Substance: PACLITAXEL
     Indication: Cardiac neoplasm malignant
     Route: 041
     Dates: start: 20220624, end: 20220624

REACTIONS (1)
  - Myelosuppression [Recovering/Resolving]

NARRATIVE: CASE EVENT DATE: 20220626
